FAERS Safety Report 6648261-2 (Version None)
Quarter: 2010Q1

REPORT INFORMATION
  Report Type: 
  Country: None (occurrence: None)
  Receive Date: 20100324
  Receipt Date: 20100317
  Transmission Date: 20100710
  Serious: Yes (Hospitalization)
  Sender: FDA-Public Use
  Company Number: BR-ELI_LILLY_AND_COMPANY-BR201003002597

PATIENT
  Sex: Female
  Weight: 43 kg

DRUGS (6)
  1. GEMCITABINE HCL [Suspect]
     Indication: BREAST CANCER METASTATIC
     Dosage: 1000 MG/M2, OTHER
     Route: 042
     Dates: start: 20100105
  2. GEMCITABINE HCL [Suspect]
     Dosage: 750 MG/M2, OTHER
     Route: 042
     Dates: start: 20100224
  3. VINFLUNINE [Suspect]
     Indication: BREAST CANCER METASTATIC
     Dosage: 320 MG/M2, OTHER
     Route: 065
     Dates: start: 20100105
  4. VINFLUNINE [Suspect]
     Dosage: 280 MG/M2, OTHER
     Route: 042
     Dates: start: 20100224
  5. IBUPROFEN [Concomitant]
     Dosage: UNK, UNKNOWN
     Route: 065
     Dates: start: 20100211
  6. PREDNISONE [Concomitant]
     Dosage: UNK, UNKNOWN
     Route: 065
     Dates: start: 20100224

REACTIONS (1)
  - PYELONEPHRITIS [None]
